FAERS Safety Report 25705527 (Version 1)
Quarter: 2025Q3

REPORT INFORMATION
  Report Type: Spontaneous
  Country: US (occurrence: US)
  Receive Date: 20250820
  Receipt Date: 20250820
  Transmission Date: 20251020
  Serious: No
  Sender: MYLAN
  Company Number: US-MYLANLABS-2025M1068733

PATIENT
  Sex: Female

DRUGS (1)
  1. METFORMIN HYDROCHLORIDE [Suspect]
     Active Substance: METFORMIN HYDROCHLORIDE
     Indication: Product used for unknown indication

REACTIONS (8)
  - Abdominal distension [Unknown]
  - Swelling [Unknown]
  - Chills [Unknown]
  - Nasopharyngitis [Unknown]
  - Eye pruritus [Unknown]
  - Pruritus genital [Unknown]
  - Pruritus [Unknown]
  - Product quality issue [Unknown]
